FAERS Safety Report 10745845 (Version 2)
Quarter: 2015Q1

REPORT INFORMATION
  Report Type: Report from Study
  Country: CA (occurrence: CA)
  Receive Date: 20150128
  Receipt Date: 20150129
  Transmission Date: 20150721
  Serious: Yes (Hospitalization)
  Sender: FDA-Public Use
  Company Number: PHHY2014CA134010

PATIENT
  Age: 59 Year
  Sex: Male

DRUGS (3)
  1. SANDOSTATIN LAR DEPOT [Suspect]
     Active Substance: OCTREOTIDE ACETATE
     Indication: GASTROINTESTINAL STOMA COMPLICATION
     Dosage: 10 MG, EVERY 4 WEEKS
     Route: 030
     Dates: start: 20141106
  2. SANDOSTATIN [Suspect]
     Active Substance: OCTREOTIDE ACETATE
     Indication: GASTROINTESTINAL STOMA COMPLICATION
     Dosage: UNK OT, Q8H
     Route: 058
     Dates: start: 201408
  3. SANDOSTATIN [Suspect]
     Active Substance: OCTREOTIDE ACETATE
     Dosage: 6 MG, (2X3 MG)
     Route: 058
     Dates: start: 20141014

REACTIONS (6)
  - Feeling abnormal [Unknown]
  - Malaise [Unknown]
  - Feeding disorder [Unknown]
  - Nausea [Unknown]
  - Product use issue [Unknown]
  - Neoplasm malignant [Unknown]

NARRATIVE: CASE EVENT DATE: 20141009
